FAERS Safety Report 6346821-X (Version None)
Quarter: 2009Q3

REPORT INFORMATION
  Report Type: 
  Country: None (occurrence: None)
  Receive Date: 20090910
  Receipt Date: 20090831
  Transmission Date: 20100115
  Serious: Yes (Other)
  Sender: FDA-Public Use
  Company Number: US-BIOGENIDEC-2005BI003752

PATIENT
  Age: 46 Year
  Sex: Female

DRUGS (2)
  1. AVONEX [Suspect]
     Indication: MULTIPLE SCLEROSIS
     Route: 030
     Dates: start: 19970101, end: 20050103
  2. AVONEX [Suspect]
     Route: 030

REACTIONS (3)
  - BREAST CANCER [None]
  - CONVULSION [None]
  - INFLUENZA LIKE ILLNESS [None]
